FAERS Safety Report 7929828-8 (Version None)
Quarter: 2011Q4

REPORT INFORMATION
  Report Type: 
  Country: None (occurrence: None)
  Receive Date: 20111116
  Receipt Date: 20111109
  Transmission Date: 20120403
  Serious: Yes (Hospitalization)
  Sender: FDA-Public Use
  Company Number: 001

PATIENT
  Age: 15 Year
  Sex: Male

DRUGS (2)
  1. CLENZIDERM THERAPEUTIC LOTION (5% BPO) [Suspect]
     Indication: ACNE
     Dosage: 1 APPLICATION, QD, TOP
     Route: 061
     Dates: start: 20110816, end: 20111108
  2. CLENZIDERM CLEANSER + PORE THERAPY (2% SALACID) [Suspect]
     Indication: ACNE
     Dosage: 1 APPLICATION, QD, TOP
     Route: 061
     Dates: start: 20110816, end: 20111108

REACTIONS (2)
  - CONDITION AGGRAVATED [None]
  - DEPRESSION [None]
